FAERS Safety Report 21265546 (Version 1)
Quarter: 2022Q3

REPORT INFORMATION
  Report Type: Spontaneous
  Country: US (occurrence: None)
  Receive Date: 20220827
  Receipt Date: 20220827
  Transmission Date: 20221027
  Serious: Yes (Other)
  Sender: FDA-Public Use
  Company Number: None

PATIENT
  Age: 23 Year
  Sex: Female
  Weight: 54.9 kg

DRUGS (10)
  1. FLUOXETINE [Suspect]
     Active Substance: FLUOXETINE HYDROCHLORIDE
     Indication: Anxiety
     Dosage: OTHER QUANTITY : 30 CAPSULE(S);?
     Route: 048
     Dates: start: 20220824, end: 20220827
  2. Ativan Prozac [Concomitant]
  3. Neo 40 [Concomitant]
  4. ALPHA LIPOIC ACID [Concomitant]
  5. COQ-10 [Concomitant]
  6. UBIQUINOL [Concomitant]
  7. L-Acetyl [Concomitant]
  8. CARNITINE [Concomitant]
     Active Substance: CARNITINE
  9. Arginate [Concomitant]
  10. MAGNESIUM [Concomitant]
     Active Substance: MAGNESIUM

REACTIONS (10)
  - Vomiting [None]
  - Heart rate increased [None]
  - Dyskinesia [None]
  - Somnolence [None]
  - Suicidal ideation [None]
  - Headache [None]
  - Anxiety [None]
  - Panic attack [None]
  - Depersonalisation/derealisation disorder [None]
  - Nausea [None]

NARRATIVE: CASE EVENT DATE: 20220826
